FAERS Safety Report 17115033 (Version 1)
Quarter: 2019Q4

REPORT INFORMATION
  Report Type: Spontaneous
  Country: SE (occurrence: SE)
  Receive Date: 20191205
  Receipt Date: 20191205
  Transmission Date: 20200122
  Serious: Yes (Hospitalization)
  Sender: FDA-Public Use
  Company Number: SE-TEVA-2019-SE-1146352

PATIENT
  Age: 28 Year
  Sex: Female

DRUGS (3)
  1. OXASCAND [Suspect]
     Active Substance: OXAZEPAM
     Dosage: ^LESS AMOUNT^
     Dates: start: 20180726, end: 20180726
  2. ZOPICLONE [Suspect]
     Active Substance: ZOPICLONE
     Dosage: ^ENSTAKA^
     Route: 065
     Dates: start: 20180726, end: 20180726
  3. LERGIGAN (PROMETHAZINE HYDROCHLORIDE) [Suspect]
     Active Substance: PROMETHAZINE HYDROCHLORIDE
     Dosage: ^A FIST^
     Route: 048
     Dates: start: 20180726, end: 20180726

REACTIONS (7)
  - Hallucination [Unknown]
  - Agitation [Unknown]
  - Restlessness [Unknown]
  - Depressed level of consciousness [Unknown]
  - Intentional self-injury [Unknown]
  - Intentional overdose [Unknown]
  - Mydriasis [Unknown]

NARRATIVE: CASE EVENT DATE: 20180726
